FAERS Safety Report 22642272 (Version 1)
Quarter: 2023Q2

REPORT INFORMATION
  Report Type: Spontaneous
  Country: JP (occurrence: JP)
  Receive Date: 20230626
  Receipt Date: 20230626
  Transmission Date: 20230722
  Serious: Yes (Death, Life-Threatening, Hospitalization, Other)
  Sender: FDA-Public Use
  Company Number: JP-DAIICHI SANKYO, INC.-DSJ-2023-118731

PATIENT
  Age: 47 Year
  Sex: Female
  Weight: 51.9 kg

DRUGS (24)
  1. ENHERTU [Suspect]
     Active Substance: FAM-TRASTUZUMAB DERUXTECAN-NXKI
     Indication: HER2 negative breast cancer
     Dosage: 5.4 MG/KG, ONCE EVERY 3 WK
     Route: 041
     Dates: start: 20230425, end: 20230425
  2. DEXTROSE [Concomitant]
     Active Substance: DEXTROSE\DEXTROSE MONOHYDRATE
     Indication: Infusion
     Dosage: 100 ML, BID
     Route: 041
     Dates: start: 20230425
  3. SODIUM CHLORIDE [Concomitant]
     Active Substance: SODIUM CHLORIDE
     Indication: Infusion
     Dosage: 10 ML, QD
     Route: 041
     Dates: start: 20230425
  4. SODIUM CHLORIDE [Concomitant]
     Active Substance: SODIUM CHLORIDE
     Indication: Cancer pain
     Dosage: 100MG/DAY
     Route: 065
     Dates: start: 20230508, end: 20230508
  5. ALOXI [Concomitant]
     Active Substance: PALONOSETRON HYDROCHLORIDE
     Indication: Antiemetic supportive care
     Dosage: 0.75 ML, QD
     Route: 041
     Dates: start: 20230425, end: 20230425
  6. DEXAMETHASONE SODIUM PHOSPHATE [Concomitant]
     Active Substance: DEXAMETHASONE SODIUM PHOSPHATE
     Indication: Antiemetic supportive care
     Dosage: 6.6 ML, QD
     Route: 041
     Dates: start: 20230425, end: 20230425
  7. NEOPHAGEN [CYSTEINE;GLYCINE;GLYCYRRHIZIC ACID] [Concomitant]
     Indication: Hepatic function abnormal
     Dosage: 20 ML, BID
     Route: 041
     Dates: start: 20230425, end: 20230512
  8. BELSOMRA [Concomitant]
     Active Substance: SUVOREXANT
     Indication: Insomnia
     Dosage: 20 MG, QD
     Route: 048
     Dates: start: 20230415, end: 20230508
  9. ZOLPIDEM TARTRATE [Concomitant]
     Active Substance: ZOLPIDEM TARTRATE
     Indication: Insomnia
     Dosage: 10 MG, QD
     Route: 048
     Dates: start: 20230424, end: 20230508
  10. ISOLEUCINE\LEUCINE\VALINE [Concomitant]
     Active Substance: ISOLEUCINE\LEUCINE\VALINE
     Indication: Hepatic function abnormal
     Dosage: 474 G, TID
     Route: 048
     Dates: start: 20230424, end: 20230508
  11. SUPACAL [Concomitant]
     Indication: Hepatic function abnormal
     Dosage: 40 MG, TID
     Route: 065
     Dates: start: 20230410, end: 20230508
  12. CHOREITOGOSHIMOTSUTO [Concomitant]
     Indication: Ascites
     Dosage: 2.5 G, TID
     Route: 065
     Dates: start: 20230410, end: 20230508
  13. FUROSEMIDE [Concomitant]
     Active Substance: FUROSEMIDE
     Indication: Ascites
     Dosage: 20 MG, BID
     Route: 048
     Dates: start: 20230331, end: 20230508
  14. CALONAL [Concomitant]
     Active Substance: ACETAMINOPHEN
     Indication: HER2 negative breast cancer
     Dosage: 400 MG, BID
     Route: 065
     Dates: end: 20230508
  15. ESOMEPRAZOLE MAGNESIUM [Concomitant]
     Active Substance: ESOMEPRAZOLE MAGNESIUM
     Indication: Decreased appetite
     Dosage: 10 MG, QD
     Route: 065
     Dates: start: 20230331, end: 20230508
  16. CALCIUM CARBONATE\CHOLECALCIFEROL\MAGNESIUM CARBONATE [Concomitant]
     Active Substance: CALCIUM CARBONATE\CHOLECALCIFEROL\MAGNESIUM CARBONATE
     Indication: Decreased appetite
     Dosage: 2 DF, QD
     Route: 048
     Dates: start: 20230331, end: 20230508
  17. BETAMETHASONE [Concomitant]
     Active Substance: BETAMETHASONE
     Indication: HER2 negative breast cancer
     Dosage: 4 DF, BID
     Route: 065
     Dates: start: 20230425, end: 20230508
  18. GLUTAMINE\SODIUM GUALENATE [Concomitant]
     Active Substance: GLUTAMINE\SODIUM GUALENATE
     Indication: Decreased appetite
     Dosage: 1.34 G, BID
     Route: 065
     Dates: start: 20230425, end: 20230508
  19. ALBUMIN HUMAN [Concomitant]
     Active Substance: ALBUMIN HUMAN
     Indication: Ascites
     Dosage: 50 ML, BID
     Route: 065
     Dates: start: 20230427, end: 20230429
  20. FLURBIPROFEN AXETIL [Concomitant]
     Active Substance: FLURBIPROFEN AXETIL
     Indication: Cancer pain
     Dosage: 50MG/DAY
     Route: 065
     Dates: start: 20230508, end: 20230508
  21. METOCLOPRAMIDE [Concomitant]
     Active Substance: METOCLOPRAMIDE
     Indication: Decreased appetite
     Dosage: 10 MG, QD
     Route: 065
     Dates: start: 20230508, end: 20230510
  22. NIZORAL [Concomitant]
     Active Substance: KETOCONAZOLE
     Indication: Vulvitis
     Dosage: UNK UNK, AS NEEDED
     Route: 065
     Dates: start: 20230508, end: 20230512
  23. ABSTRAL [Concomitant]
     Active Substance: FENTANYL CITRATE
     Indication: Cancer pain
     Dosage: UNK UNK, AS NEEDED, AT PAIN TIME
     Route: 065
     Dates: start: 20230508, end: 20230511
  24. FENTANYL [Concomitant]
     Active Substance: FENTANYL
     Indication: Cancer pain
     Dosage: 1 MG, QD
     Route: 065
     Dates: start: 20230508, end: 20230512

REACTIONS (4)
  - Respiratory disorder [Fatal]
  - Hepatic failure [Fatal]
  - Cardiac failure [Fatal]
  - Disease progression [Fatal]

NARRATIVE: CASE EVENT DATE: 20230101
